FAERS Safety Report 23787818 (Version 1)
Quarter: 2024Q2

REPORT INFORMATION
  Report Type: Spontaneous
  Country: BR (occurrence: BR)
  Receive Date: 20240426
  Receipt Date: 20240426
  Transmission Date: 20240716
  Serious: Yes (Other)
  Sender: FDA-Public Use
  Company Number: BR-PFIZER INC-PV202400054448

PATIENT
  Age: 70 Year
  Sex: Female

DRUGS (11)
  1. XELJANZ [Suspect]
     Active Substance: TOFACITINIB CITRATE
     Indication: Rheumatoid arthritis
     Dosage: 5 MG, 2X/DAY
  2. PURAN [Concomitant]
     Active Substance: LEVOTHYROXINE SODIUM
  3. LOSARTAN POTASSIUM [Concomitant]
     Active Substance: LOSARTAN POTASSIUM
     Dosage: UNK, 2X/DAY
  4. HYDROCHLOROTHIAZIDE [Concomitant]
     Active Substance: HYDROCHLOROTHIAZIDE
  5. METFORMIN HYDROCHLORIDE [Concomitant]
     Active Substance: METFORMIN HYDROCHLORIDE
  6. SIMVASTATIN [Concomitant]
     Active Substance: SIMVASTATIN
  7. EXODUS [ESCITALOPRAM OXALATE] [Concomitant]
  8. ALENDRONATE [Concomitant]
     Active Substance: ALENDRONATE SODIUM
  9. VITAMIN D NOS [Concomitant]
     Active Substance: VITAMIN D NOS
     Dosage: 7000 IU, WEEKLY
  10. FOLIC ACID [Concomitant]
     Active Substance: FOLIC ACID
  11. DEFLAZACORT [Concomitant]
     Active Substance: DEFLAZACORT
     Dosage: UNK, CYCLIC (3X/WEEK)

REACTIONS (1)
  - Diverticulitis intestinal perforated [Unknown]
